FAERS Safety Report 8323063-X (Version None)
Quarter: 2012Q2

REPORT INFORMATION
  Report Type: 
  Country: None (occurrence: None)
  Receive Date: 20120430
  Receipt Date: 20120416
  Transmission Date: 20120825
  Serious: Yes (Death, Hospitalization, Other)
  Sender: FDA-Public Use
  Company Number: US-MYLANLABS-2009AC000434

PATIENT
  Age: 80 Year
  Sex: Male
  Weight: 79.38 kg

DRUGS (37)
  1. ASPIRIN [Concomitant]
  2. DORYX [Concomitant]
  3. LEVAQUIN [Concomitant]
  4. ATENOLOL [Concomitant]
  5. CLONIDINE [Concomitant]
  6. DARVOCET [Concomitant]
  7. PROCARDIA /00340701/ [Concomitant]
  8. VIOXX [Concomitant]
  9. ACTOS [Concomitant]
  10. FLOMAX [Concomitant]
  11. LASIX [Concomitant]
  12. MULTI-VITAMIN [Concomitant]
  13. GLUCOTROL [Concomitant]
  14. FUROSEMIDE [Concomitant]
  15. GLYBURIDE [Concomitant]
     Dosage: TWO TABLETS
  16. NITROGLYCERIN [Concomitant]
  17. TOPROL-XL [Concomitant]
  18. VANCOMYCIN [Concomitant]
  19. CORTISONE ACETATE [Concomitant]
  20. SYNTHROID [Concomitant]
     Dosage: TWO PILLS/DAY
  21. LISINOPRIL [Concomitant]
  22. LOMOTIL [Concomitant]
  23. PRAVACHOL [Concomitant]
  24. VICODIN [Concomitant]
  25. ASPIRIN [Concomitant]
  26. DIGOXIN [Suspect]
     Route: 048
     Dates: start: 20060402
  27. ADVAIR DISKUS 100/50 [Concomitant]
  28. AMITIZA [Concomitant]
  29. GEMFIBROZIL [Concomitant]
  30. LOPID [Concomitant]
  31. ALLOPURINOL [Concomitant]
  32. ANTIBIOTICS [Concomitant]
  33. HYDROCHLOROTHIAZIDE [Concomitant]
  34. LANTUS [Concomitant]
  35. MAGNESIUM CITRATE [Concomitant]
  36. PLAVIX [Concomitant]
  37. ZOCOR [Concomitant]

REACTIONS (94)
  - PNEUMONIA [None]
  - BLADDER OBSTRUCTION [None]
  - HYPERKALAEMIA [None]
  - ASTHENIA [None]
  - DECREASED APPETITE [None]
  - PULMONARY FIBROSIS [None]
  - CHEST DISCOMFORT [None]
  - WOUND TREATMENT [None]
  - CHILLS [None]
  - FAECALOMA [None]
  - DIABETES MELLITUS [None]
  - HYPERLIPIDAEMIA [None]
  - LUNG OPERATION [None]
  - ATRIOVENTRICULAR BLOCK FIRST DEGREE [None]
  - SKIN WARM [None]
  - LIVER FUNCTION TEST ABNORMAL [None]
  - PYREXIA [None]
  - PEDAL PULSE ABNORMAL [None]
  - INJURY [None]
  - DEATH [None]
  - ISCHAEMIA [None]
  - GOUT [None]
  - CORONARY ARTERY BYPASS [None]
  - DILATATION VENTRICULAR [None]
  - INTERMITTENT CLAUDICATION [None]
  - BLISTER [None]
  - CYANOSIS [None]
  - NEPHROPATHY [None]
  - VENTRICULAR EXTRASYSTOLES [None]
  - INFARCTION [None]
  - LYMPHADENOPATHY [None]
  - ARTERIOSCLEROSIS [None]
  - ADRENAL INSUFFICIENCY [None]
  - HYPOTHYROIDISM [None]
  - CLOSTRIDIUM DIFFICILE COLITIS [None]
  - CARDIAC DISORDER [None]
  - RENAL FAILURE CHRONIC [None]
  - CORONARY ARTERY OCCLUSION [None]
  - PHIMOSIS [None]
  - URINARY RETENTION [None]
  - NAUSEA [None]
  - EMPHYSEMA [None]
  - ARTHRALGIA [None]
  - PALLOR [None]
  - CARDIAC FAILURE CONGESTIVE [None]
  - TYPE 2 DIABETES MELLITUS [None]
  - FEMORAL ARTERY OCCLUSION [None]
  - ATELECTASIS [None]
  - HYPERAEMIA [None]
  - NEUROPATHY PERIPHERAL [None]
  - INFECTION [None]
  - DEPENDENT RUBOR [None]
  - LACERATION [None]
  - ILL-DEFINED DISORDER [None]
  - HYPERTENSION [None]
  - CARDIOMYOPATHY [None]
  - RENAL FAILURE ACUTE [None]
  - TOE AMPUTATION [None]
  - HYPOKINESIA [None]
  - ARTERIAL STENOSIS [None]
  - SINUS BRADYCARDIA [None]
  - PAIN IN EXTREMITY [None]
  - SOFT TISSUE INJURY [None]
  - ABDOMINAL PAIN [None]
  - BENIGN PROSTATIC HYPERPLASIA [None]
  - LEUKOCYTOSIS [None]
  - BLOOD GLUCOSE ABNORMAL [None]
  - ECONOMIC PROBLEM [None]
  - PERIPHERAL VASCULAR DISORDER [None]
  - STAPHYLOCOCCAL BACTERAEMIA [None]
  - URINARY TRACT INFECTION [None]
  - PSEUDOMONAS INFECTION [None]
  - GANGRENE [None]
  - PERIPHERAL ISCHAEMIA [None]
  - PULMONARY MASS [None]
  - CHRONIC OBSTRUCTIVE PULMONARY DISEASE [None]
  - DYSPNOEA [None]
  - CELLULITIS [None]
  - BLOOD POTASSIUM INCREASED [None]
  - FASCIITIS [None]
  - CONSTIPATION [None]
  - RALES [None]
  - X-RAY ABNORMAL [None]
  - ELECTROCARDIOGRAM ABNORMAL [None]
  - SKIN ULCER [None]
  - ILEUS [None]
  - ANAEMIA [None]
  - DEHYDRATION [None]
  - DEPRESSION [None]
  - CORONARY ARTERY DISEASE [None]
  - NON-SMALL CELL LUNG CANCER [None]
  - ERYTHEMA [None]
  - CARDIAC MURMUR [None]
  - GASTROINTESTINAL SOUNDS ABNORMAL [None]
